FAERS Safety Report 7851605-7 (Version None)
Quarter: 2011Q4

REPORT INFORMATION
  Report Type: 
  Country: None (occurrence: None)
  Receive Date: 20111026
  Receipt Date: 20111018
  Transmission Date: 20120403
  Serious: Yes (Other)
  Sender: FDA-Public Use
  Company Number: FR-JNJFOC-20111009921

PATIENT
  Sex: Female

DRUGS (5)
  1. MESNA [Suspect]
     Indication: SARCOMA UTERUS
     Route: 065
  2. CISPLATIN [Suspect]
     Indication: SARCOMA UTERUS
     Route: 065
  3. DOXORUBICIN HCL [Suspect]
     Indication: SARCOMA UTERUS
     Route: 042
  4. IFOSFAMIDE [Suspect]
     Indication: SARCOMA UTERUS
     Route: 065
  5. LENOGRASTIM [Suspect]
     Indication: SARCOMA UTERUS
     Route: 065

REACTIONS (1)
  - NEPHROPATHY TOXIC [None]
